FAERS Safety Report 9853633 (Version 1)
Quarter: 2014Q1

REPORT INFORMATION
  Report Type: Spontaneous
  Country: IE (occurrence: IE)
  Receive Date: 20140129
  Receipt Date: 20140129
  Transmission Date: 20141002
  Serious: Yes (Hospitalization)
  Sender: FDA-Public Use
  Company Number: US-ASTRAZENECA-2014SE05700

PATIENT
  Age: 64 Day
  Sex: Male

DRUGS (5)
  1. SYNAGIS [Suspect]
     Indication: PREMATURE BABY
     Route: 030
     Dates: start: 20131205
  2. CALC SUPPLEMENT [Concomitant]
     Dosage: UNKNOWN
     Route: 065
  3. NASO GASTRIC (N/G) BOTTLE [Concomitant]
     Dosage: UNKNOWN
     Route: 065
  4. ABIDEC [Concomitant]
     Route: 065
  5. GALFER [Concomitant]
     Dosage: UNKNOWN
     Route: 065

REACTIONS (1)
  - Pneumonia [Not Recovered/Not Resolved]
